FAERS Safety Report 17766118 (Version 3)
Quarter: 2020Q2

REPORT INFORMATION
  Report Type: Spontaneous
  Country: FR (occurrence: FR)
  Receive Date: 20200511
  Receipt Date: 20200609
  Transmission Date: 20200714
  Serious: Yes (Death, Other)
  Sender: FDA-Public Use
  Company Number: FR-BAYER-2020-043234

PATIENT
  Sex: Female

DRUGS (6)
  1. VITRAKVI [Suspect]
     Active Substance: LAROTRECTINIB
     Indication: SALIVARY GLAND CANCER
     Dosage: UNK
     Dates: start: 201906
  2. VITRAKVI [Suspect]
     Active Substance: LAROTRECTINIB
     Indication: SALIVARY GLAND CANCER
     Dosage: UNK
     Dates: start: 202001
  3. VITRAKVI [Suspect]
     Active Substance: LAROTRECTINIB
     Indication: METASTASES TO LUNG
  4. VITRAKVI [Suspect]
     Active Substance: LAROTRECTINIB
     Indication: METASTASES TO BONE
  5. VITRAKVI [Suspect]
     Active Substance: LAROTRECTINIB
     Indication: METASTASES TO LUNG
  6. VITRAKVI [Suspect]
     Active Substance: LAROTRECTINIB
     Indication: METASTASES TO BONE

REACTIONS (7)
  - Respiratory failure [Fatal]
  - Product dispensing error [None]
  - Metastases to lung [Fatal]
  - Drug ineffective [None]
  - Osteolysis [None]
  - Spinal pain [Recovering/Resolving]
  - Intentional product use issue [None]

NARRATIVE: CASE EVENT DATE: 20191220
